FAERS Safety Report 6755989-2 (Version None)
Quarter: 2010Q2

REPORT INFORMATION
  Report Type: 
  Country: None (occurrence: None)
  Receive Date: 20100604
  Receipt Date: 20100601
  Transmission Date: 20101027
  Serious: Yes (Death, Hospitalization)
  Sender: FDA-Public Use
  Company Number: PHHO2010JP04517

PATIENT
  Sex: Male
  Weight: 62 kg

DRUGS (10)
  1. AFINITOR [Suspect]
     Indication: METASTATIC GASTRIC CANCER
     Dosage: UNK
     Route: 048
     Dates: start: 20100203, end: 20100318
  2. KARY UNI [Concomitant]
  3. UREPEARL [Concomitant]
  4. ANTEBATE [Concomitant]
  5. HIRUDOID [Concomitant]
  6. GLYMESASON [Concomitant]
  7. FLUOROMETHOLONE [Concomitant]
  8. HACHIAZULE [Concomitant]
  9. DEXALTIN [Concomitant]
  10. BLOOD TRANSFUSION, AUXILIARY PRODUCTS [Concomitant]

REACTIONS (29)
  - ABDOMINAL CAVITY DRAINAGE [None]
  - ABDOMINAL DISTENSION [None]
  - ABDOMINAL PAIN UPPER [None]
  - ANURIA [None]
  - ATRIAL FIBRILLATION [None]
  - BLOOD PRESSURE DECREASED [None]
  - CATHETER PLACEMENT [None]
  - DECREASED APPETITE [None]
  - EPISTAXIS [None]
  - GENERAL PHYSICAL HEALTH DETERIORATION [None]
  - HEART RATE INCREASED [None]
  - HEPATIC FAILURE [None]
  - INFECTION [None]
  - INTERNAL HERNIA [None]
  - INTESTINAL PERFORATION [None]
  - INTRA-ABDOMINAL HAEMORRHAGE [None]
  - JAUNDICE [None]
  - LOCALISED INTRAABDOMINAL FLUID COLLECTION [None]
  - MECHANICAL ILEUS [None]
  - METASTASES TO LIVER [None]
  - PERITONITIS [None]
  - RENAL IMPAIRMENT [None]
  - SEPSIS [None]
  - SEPTIC SHOCK [None]
  - SHOCK [None]
  - STOMATITIS [None]
  - SURGERY [None]
  - THROMBOSIS IN DEVICE [None]
  - VOMITING [None]
